FAERS Safety Report 19108734 (Version 2)
Quarter: 2021Q2

REPORT INFORMATION
  Report Type: Spontaneous
  Country: CA (occurrence: CA)
  Receive Date: 20210408
  Receipt Date: 20210526
  Transmission Date: 20210717
  Serious: Yes (Other)
  Sender: FDA-Public Use
  Company Number: CA-AMERICAN REGENT INC-2021000862

PATIENT
  Age: 23 Year
  Sex: Female

DRUGS (2)
  1. VENOFER [Suspect]
     Active Substance: IRON SUCROSE
     Indication: IRON DEFICIENCY ANAEMIA
     Dosage: 300 MILLIGRAM, SINGLE
     Dates: start: 20201105, end: 20201105
  2. IRON [Concomitant]
     Active Substance: IRON
     Indication: IRON DEFICIENCY ANAEMIA
     Dosage: UNK
     Route: 065

REACTIONS (8)
  - Rash [Unknown]
  - Blood pressure immeasurable [Recovering/Resolving]
  - Hypoaesthesia [Unknown]
  - Chest discomfort [Unknown]
  - Heart rate decreased [Recovering/Resolving]
  - Oxygen saturation decreased [Recovering/Resolving]
  - Chest pain [Unknown]
  - Restlessness [Recovering/Resolving]

NARRATIVE: CASE EVENT DATE: 20201105
